FAERS Safety Report 10182521 (Version 1)
Quarter: 2014Q2

REPORT INFORMATION
  Report Type: Spontaneous
  Country: US (occurrence: None)
  Receive Date: 20140519
  Receipt Date: 20140519
  Transmission Date: 20141212
  Serious: Yes (Other)
  Sender: FDA-Public Use
  Company Number: None

PATIENT
  Age: 14 Year
  Sex: Male
  Weight: 52.16 kg

DRUGS (1)
  1. VENTOLIN HFA [Suspect]
     Indication: BRONCHOSPASM
     Dosage: 2 INHLATIONS AS NEEDED INHALATION
     Dates: start: 20140501, end: 20140517

REACTIONS (2)
  - Drug ineffective [None]
  - Product substitution issue [None]
